FAERS Safety Report 9750770 (Version 1)
Quarter: 2013Q4

REPORT INFORMATION
  Report Type: Spontaneous
  Country: US (occurrence: US)
  Receive Date: 20131212
  Receipt Date: 20131212
  Transmission Date: 20140711
  Serious: No
  Sender: FDA-Public Use
  Company Number: US-BIOGENIDEC-2013BI096905

PATIENT
  Age: 69 Year
  Sex: Female

DRUGS (1)
  1. TECFIDERA [Suspect]
     Indication: MULTIPLE SCLEROSIS
     Dates: start: 20130925

REACTIONS (7)
  - Eyelid oedema [Unknown]
  - Lip swelling [Unknown]
  - Paraesthesia [Unknown]
  - Dysphagia [Unknown]
  - Flushing [Unknown]
  - Erythema [Unknown]
  - Burning sensation [Unknown]
